FAERS Safety Report 13511755 (Version 2)
Quarter: 2017Q2

REPORT INFORMATION
  Report Type: Spontaneous
  Country: GB (occurrence: GB)
  Receive Date: 20170504
  Receipt Date: 20170514
  Transmission Date: 20170830
  Serious: Yes (Death, Other)
  Sender: FDA-Public Use
  Company Number: GB-MYLANLABS-2017M1027143

PATIENT

DRUGS (11)
  1. MIRTAZAPINE. [Concomitant]
     Active Substance: MIRTAZAPINE
     Indication: MAJOR DEPRESSION
     Dosage: 45 MG, PM
  2. HYOSCINE [Concomitant]
     Active Substance: SCOPOLAMINE
     Indication: MAJOR DEPRESSION
     Dosage: 300 MG, TID
  3. HYDROBROMIDE DEXTROMETHORPHAN [Concomitant]
     Indication: BORDERLINE PERSONALITY DISORDER
  4. SULPIRIDE [Concomitant]
     Active Substance: SULPIRIDE
     Indication: MAJOR DEPRESSION
     Dosage: 200 MG, AM
  5. HYDROBROMIDE DEXTROMETHORPHAN [Concomitant]
     Indication: MAJOR DEPRESSION
     Dosage: UNK
  6. CLOZARIL [Suspect]
     Active Substance: CLOZAPINE
     Indication: MAJOR DEPRESSION
  7. MIRTAZAPINE. [Concomitant]
     Active Substance: MIRTAZAPINE
     Indication: BORDERLINE PERSONALITY DISORDER
  8. HYOSCINE [Concomitant]
     Active Substance: SCOPOLAMINE
     Indication: BORDERLINE PERSONALITY DISORDER
  9. CLOZARIL [Suspect]
     Active Substance: CLOZAPINE
     Indication: SCHIZOPHRENIA
     Dosage: 450 MG, PM
     Route: 048
     Dates: start: 20101214
  10. CLOZARIL [Suspect]
     Active Substance: CLOZAPINE
     Indication: BORDERLINE PERSONALITY DISORDER
  11. SULPIRIDE [Concomitant]
     Active Substance: SULPIRIDE
     Indication: BORDERLINE PERSONALITY DISORDER
     Dosage: 600 MG, PM

REACTIONS (3)
  - Terminal state [Unknown]
  - Malignant blue naevus [Fatal]
  - Product use in unapproved indication [Unknown]

NARRATIVE: CASE EVENT DATE: 20101214
